FAERS Safety Report 8123154-2 (Version None)
Quarter: 2012Q1

REPORT INFORMATION
  Report Type: 
  Country: None (occurrence: None)
  Receive Date: 20120208
  Receipt Date: 20120203
  Transmission Date: 20120608
  Serious: Yes (Hospitalization, Other)
  Sender: FDA-Public Use
  Company Number: US-ASTRAZENECA-2007UW19424

PATIENT
  Age: 45 Year
  Sex: Male
  Weight: 113.4 kg

DRUGS (30)
  1. PLAVIX [Concomitant]
     Route: 048
     Dates: start: 20040504
  2. KEPPRA [Concomitant]
     Route: 048
     Dates: start: 20031107
  3. SEROQUEL [Suspect]
     Indication: DEPRESSION
     Route: 048
     Dates: start: 20031101, end: 20040701
  4. SEROQUEL [Suspect]
     Route: 048
     Dates: start: 20031202
  5. SEROQUEL [Suspect]
     Dosage: 25MG - 100MG
     Route: 048
     Dates: start: 20040118
  6. XANAX [Concomitant]
     Dates: start: 20041217
  7. SEROQUEL [Suspect]
     Indication: STRESS
     Route: 048
     Dates: start: 20031101, end: 20040701
  8. SEROQUEL [Suspect]
     Route: 048
     Dates: start: 20031202
  9. SEROQUEL [Suspect]
     Dosage: 25MG - 100MG
     Route: 048
     Dates: start: 20040118
  10. XANAX [Concomitant]
     Dates: start: 20031125
  11. PREVACID [Concomitant]
     Route: 048
     Dates: start: 20031107
  12. NIASPAN [Concomitant]
     Indication: DYSLIPIDAEMIA
     Route: 048
     Dates: start: 20031124
  13. ZOLOFT [Concomitant]
     Route: 048
     Dates: start: 20040101
  14. TRILEPTAL [Concomitant]
     Route: 048
     Dates: start: 20040504
  15. SEROQUEL [Suspect]
     Indication: ANXIETY
     Route: 048
     Dates: start: 20031101, end: 20040701
  16. SEROQUEL [Suspect]
     Route: 048
     Dates: start: 20031202
  17. PRAVACHOL [Concomitant]
     Route: 048
     Dates: start: 19990513
  18. ASPIRIN [Concomitant]
     Dosage: 325 MG EC TAB DAILY
     Route: 048
     Dates: start: 19990513
  19. AMBIEN [Concomitant]
     Route: 048
     Dates: start: 20031104
  20. XANAX [Concomitant]
     Dosage: 1 MG, 1 TO 2 TABS PRN
     Dates: start: 20040504
  21. PREVACID [Concomitant]
     Route: 048
     Dates: start: 20031125
  22. ASPIRIN [Concomitant]
     Route: 048
     Dates: start: 20031125
  23. SEROQUEL [Suspect]
     Dosage: 25MG - 100MG
     Route: 048
     Dates: start: 20040118
  24. EFIXIER/EFFEXOR XR [Concomitant]
     Route: 048
     Dates: start: 20020101
  25. MIRAPEX [Concomitant]
     Route: 048
     Dates: start: 20040101
  26. OMEPRAZOLE [Concomitant]
     Route: 048
     Dates: start: 20040504
  27. DEPAKOTE ER [Concomitant]
     Route: 048
     Dates: start: 20031104
  28. CATAPRES-TTS-1 [Concomitant]
     Dates: start: 20031118
  29. VIAGRA [Concomitant]
     Dates: start: 20031118
  30. AMBIEN [Concomitant]
     Dosage: 5-10 MG
     Route: 048
     Dates: start: 20031125

REACTIONS (7)
  - OBESITY [None]
  - BLOOD GLUCOSE ABNORMAL [None]
  - TYPE 1 DIABETES MELLITUS [None]
  - ERECTILE DYSFUNCTION [None]
  - DIABETES MELLITUS [None]
  - DIABETES MELLITUS INADEQUATE CONTROL [None]
  - BLOOD TRIGLYCERIDES INCREASED [None]
